FAERS Safety Report 6906468-0 (Version None)
Quarter: 2010Q3

REPORT INFORMATION
  Report Type: 
  Country: None (occurrence: None)
  Receive Date: 20100804
  Receipt Date: 20100726
  Transmission Date: 20110219
  Serious: Yes (Other)
  Sender: FDA-Public Use
  Company Number: US-ASTRAZENECA-2010SE34846

PATIENT
  Age: 47 Year
  Sex: Male
  Weight: 109 kg

DRUGS (13)
  1. SEROQUEL [Suspect]
     Route: 048
  2. SEROQUEL [Interacting]
     Route: 048
     Dates: start: 20080101
  3. CHANTIX [Interacting]
     Indication: SMOKING CESSATION THERAPY
     Route: 048
     Dates: start: 20100614, end: 20100601
  4. CHANTIX [Interacting]
     Route: 048
     Dates: start: 20100601, end: 20100601
  5. CHANTIX [Interacting]
     Route: 048
     Dates: start: 20100601
  6. CHANTIX [Interacting]
     Route: 048
     Dates: start: 20100601
  7. ZOLOFT [Interacting]
     Dates: start: 20080101
  8. CLOZARIL [Interacting]
     Dates: start: 20080101
  9. BENAZEPRIL [Concomitant]
     Indication: HYPERTENSION
  10. ZOLPIDEM [Concomitant]
     Indication: INSOMNIA
  11. PRAVASTATIN [Concomitant]
     Indication: BLOOD CHOLESTEROL INCREASED
  12. CLONAZEPAM [Concomitant]
  13. FUROSEMIDE [Concomitant]

REACTIONS (4)
  - BLOOD CHOLESTEROL INCREASED [None]
  - DRUG INTERACTION [None]
  - HALLUCINATION [None]
  - PARANOIA [None]
